FAERS Safety Report 25643422 (Version 1)
Quarter: 2025Q3

REPORT INFORMATION
  Report Type: Spontaneous
  Country: GB (occurrence: GB)
  Receive Date: 20250805
  Receipt Date: 20250805
  Transmission Date: 20251020
  Serious: Yes (Hospitalization)
  Sender: Unknown Manufacturer
  Company Number: None

PATIENT
  Age: 89 Year
  Sex: Female

DRUGS (5)
  1. APIXABAN [Suspect]
     Active Substance: APIXABAN
     Indication: Product used for unknown indication
     Dosage: 5MG 2 TIMES A DAY (BD)?ONE TO BE TAKEN TWICE A DAY
  2. Indapamide 1.5mg modified-release tablets [Concomitant]
     Indication: Product used for unknown indication
  3. Fultium-D3 800unit capsules (Internis Pharmaceuticals Ltd) [Concomitant]
     Indication: Product used for unknown indication
  4. Hydroxocobalamin 1mg/1ml solution for injection ampoules [Concomitant]
     Indication: Product used for unknown indication
  5. Bisoprolol 1.25mg tablets [Concomitant]
     Indication: Product used for unknown indication

REACTIONS (2)
  - Epistaxis [Unknown]
  - Product prescribing issue [Unknown]
